FAERS Safety Report 25268506 (Version 2)
Quarter: 2025Q2

REPORT INFORMATION
  Report Type: Spontaneous
  Country: FR (occurrence: FR)
  Receive Date: 20250505
  Receipt Date: 20250529
  Transmission Date: 20250716
  Serious: Yes (Death, Hospitalization)
  Sender: ACCORD
  Company Number: None

PATIENT
  Age: 78 Year
  Sex: Male
  Weight: 75 kg

DRUGS (10)
  1. METHOTREXATE [Suspect]
     Active Substance: METHOTREXATE
     Indication: Polymyalgia rheumatica
     Dates: start: 202502, end: 20250227
  2. PREDNISONE [Suspect]
     Active Substance: PREDNISONE
     Indication: Polymyalgia rheumatica
     Dates: start: 20241017, end: 202502
  3. RISEDRONATE SODIUM [Suspect]
     Active Substance: RISEDRONATE SODIUM
     Indication: Prophylaxis
     Dates: start: 202410, end: 202502
  4. ALLOPURINOL [Concomitant]
     Active Substance: ALLOPURINOL
     Dates: end: 202502
  5. CANDESARTAN CILEXETIL [Concomitant]
     Active Substance: CANDESARTAN CILEXETIL
     Dates: end: 202502
  6. ENANTONE LP [Concomitant]
     Active Substance: LEUPROLIDE ACETATE
     Dosage: STRENGTH: 11.25 MG, MICROSPHERES AND PROLONGED-RELEASE SOLUTION FOR PARENTERAL USE (SC OR IM)
  7. EZETIMIBE [Concomitant]
     Active Substance: EZETIMIBE
     Dosage: STRENGTH: 10 MG
     Dates: end: 202502
  8. JANUMET [Concomitant]
     Active Substance: METFORMIN HYDROCHLORIDE\SITAGLIPTIN PHOSPHATE
     Dosage: STRENGTH: 50 MG/1000 MG
     Dates: end: 202502
  9. KARDEGIC [Concomitant]
     Active Substance: ASPIRIN DL-LYSINE
     Dosage: STRENGTH: 75 MG, POWDER FOR ORAL SOLUTION IN SACHET-DOSE
     Dates: end: 202502
  10. FOLIC ACID [Concomitant]
     Active Substance: FOLIC ACID
     Indication: Prophylaxis
     Dosage: STRENGTH: 5 MG
     Dates: start: 202502

REACTIONS (3)
  - Enteritis [Not Recovered/Not Resolved]
  - Haemophagocytic lymphohistiocytosis [Fatal]
  - Mucosal ulceration [Not Recovered/Not Resolved]

NARRATIVE: CASE EVENT DATE: 20250226
